FAERS Safety Report 4435829-7 (Version None)
Quarter: 2004Q3

REPORT INFORMATION
  Report Type: 
  Country: None (occurrence: None)
  Receive Date: 20040726
  Receipt Date: 20040427
  Transmission Date: 20050211
  Serious: No
  Sender: FDA-Public Use
  Company Number: USA031253682

PATIENT
  Age: 79 Year
  Sex: Female
  Weight: 70 kg

DRUGS (3)
  1. FORTERO [Suspect]
     Indication: OSTEOPOROSIS
     Dosage: 20 UG/1 DAY
     Dates: start: 20031101
  2. CALCIUM [Concomitant]
  3. GLUCOSAMINE CHONDROITIN [Concomitant]

REACTIONS (7)
  - ARTHRALGIA [None]
  - BUTTOCK PAIN [None]
  - GROIN PAIN [None]
  - MIDDLE INSOMNIA [None]
  - MUSCULOSKELETAL STIFFNESS [None]
  - PAIN IN EXTREMITY [None]
  - URINE OUTPUT DECREASED [None]
